FAERS Safety Report 8964692 (Version 1)
Quarter: 2012Q4

REPORT INFORMATION
  Report Type: Report from Study
  Country: JP (occurrence: JP)
  Receive Date: 20121213
  Receipt Date: 20121213
  Transmission Date: 20130627
  Serious: Yes (Hospitalization, Other)
  Sender: FDA-Public Use
  Company Number: JP-PFIZER INC-2012308009

PATIENT
  Age: 39 Year
  Sex: Male
  Weight: 58 kg

DRUGS (16)
  1. MEDROL [Suspect]
     Indication: PROPHYLAXIS AGAINST RENAL TRANSPLANT REJECTION
     Dosage: 4 mg, 1x/day
     Route: 048
     Dates: start: 20090409
  2. MEDROL [Suspect]
     Dosage: 4 mg, 1x/day
     Route: 048
     Dates: start: 20090417
  3. MYCOPHENOLATE MOFETIL [Suspect]
     Dosage: 1000 mg, 2x/day
     Route: 048
     Dates: start: 20090409, end: 20091026
  4. MYCOPHENOLATE MOFETIL [Suspect]
     Dosage: 500 mg, 2x/day
     Route: 048
     Dates: start: 20091027
  5. VOLTAREN [Suspect]
     Indication: LOW BACK PAIN
     Dosage: 60 mg, 2x/day (TAPE)
     Route: 061
     Dates: start: 20090530, end: 20090615
  6. SIMULECT [Suspect]
     Indication: PROPHYLAXIS AGAINST RENAL TRANSPLANT REJECTION
     Dosage: 20 mg, 1x/day
     Route: 042
     Dates: start: 20090408, end: 20090408
  7. SIMULECT [Suspect]
     Dosage: 20 mg, 1x/day
     Route: 042
     Dates: start: 20090412, end: 20090412
  8. NEORAL [Suspect]
     Indication: PROPHYLAXIS AGAINST RENAL TRANSPLANT REJECTION
     Dosage: 175 mg, 1x/day (divided into two doses)
     Route: 048
     Dates: start: 20090409
  9. NEORAL [Suspect]
     Dosage: 175 mg/day (divided into 2 doses)
     Route: 048
     Dates: start: 20090413
  10. BAYASPIRIN [Concomitant]
     Dosage: 100 mg, 1x/day
     Route: 048
     Dates: start: 20090414
  11. ZOVIRAX [Concomitant]
     Dosage: 200 MG x twice/day and twice a week (monday and thursday) (400 mg, 2 in 1 wk)
     Route: 048
     Dates: start: 20090423
  12. CIMETIDINE [Concomitant]
     Dosage: 200 mg, 1x/day
     Route: 048
     Dates: start: 20090408
  13. ISODINE [Concomitant]
     Dosage: proper quantity and several time during a day
     Route: 049
     Dates: start: 20090414
  14. URINORM [Concomitant]
     Dosage: 25 mg, 1x/day
     Route: 048
     Dates: start: 20090609
  15. SULFAMETHOXAZOLE W/TRIMETHOPRIM [Concomitant]
     Dosage: 1 tablet x twice/day and twice a week (monday and thursday) (2 DF, 2 in 1 wk)
     Route: 048
     Dates: start: 20090423
  16. CALSLOT [Concomitant]
     Dosage: 10 mg, 2x/day
     Dates: start: 20090415

REACTIONS (4)
  - Renal tubular necrosis [Recovered/Resolved]
  - Blood creatinine increased [Recovered/Resolved]
  - Osteonecrosis [Not Recovered/Not Resolved]
  - Cytomegalovirus viraemia [Recovered/Resolved]
